FAERS Safety Report 25319897 (Version 2)
Quarter: 2025Q2

REPORT INFORMATION
  Report Type: Spontaneous
  Country: JP (occurrence: JP)
  Receive Date: 20250515
  Receipt Date: 20250519
  Transmission Date: 20250716
  Serious: Yes (Death)
  Sender: PFIZER
  Company Number: JP-PFIZER INC-PV202500056866

PATIENT
  Age: 67 Year
  Sex: Male

DRUGS (3)
  1. VORICONAZOLE [Suspect]
     Active Substance: VORICONAZOLE
     Indication: Cerebral aspergillosis
     Dosage: 6 MG/KG, 2X/DAY
     Route: 042
  2. VORICONAZOLE [Suspect]
     Active Substance: VORICONAZOLE
     Indication: Antifungal treatment
     Dosage: 4 MG/KG, 2X/DAY
  3. VORICONAZOLE [Suspect]
     Active Substance: VORICONAZOLE
     Dosage: 50 MG, 1X/DAY

REACTIONS (1)
  - Drug resistance [Fatal]
